FAERS Safety Report 6848316-3 (Version None)
Quarter: 2010Q3

REPORT INFORMATION
  Report Type: 
  Country: None (occurrence: None)
  Receive Date: 20100716
  Receipt Date: 20100707
  Transmission Date: 20110219
  Serious: Yes (Other)
  Sender: FDA-Public Use
  Company Number: ES-ABBOTT-07P-144-0374112-00

PATIENT
  Sex: Male

DRUGS (5)
  1. HUMIRA [Suspect]
     Indication: CROHN'S DISEASE
     Route: 058
     Dates: start: 20070314
  2. INFLIXIMAB [Suspect]
     Indication: CROHN'S DISEASE
     Dates: start: 20060601
  3. DACORTIN [Concomitant]
     Indication: CROHN'S DISEASE
     Route: 048
  4. PENTASA [Concomitant]
     Indication: CROHN'S DISEASE
     Route: 048
  5. IMUREL [Concomitant]
     Indication: CROHN'S DISEASE
     Route: 048

REACTIONS (1)
  - PSORIASIS [None]
